FAERS Safety Report 18371222 (Version 1)
Quarter: 2020Q4

REPORT INFORMATION
  Report Type: Spontaneous
  Country: US (occurrence: US)
  Receive Date: 20201012
  Receipt Date: 20201012
  Transmission Date: 20210114
  Serious: No
  Sender: FDA-Public Use
  Company Number: US-SA-2020SA276144

PATIENT

DRUGS (1)
  1. MYOZYME [Suspect]
     Active Substance: ALGLUCOSIDASE ALFA
     Route: 065

REACTIONS (3)
  - Drug specific antibody [Unknown]
  - Off label use [Unknown]
  - Therapeutic product effect decreased [Unknown]
